FAERS Safety Report 25310528 (Version 1)
Quarter: 2025Q2

REPORT INFORMATION
  Report Type: Spontaneous
  Country: CN (occurrence: CN)
  Receive Date: 20250514
  Receipt Date: 20250514
  Transmission Date: 20250717
  Serious: Yes (Other)
  Sender: BEIGENE
  Company Number: CN-BEIGENE-BGN-2025-007380

PATIENT
  Age: 55 Year
  Weight: 61 kg

DRUGS (10)
  1. TISLELIZUMAB [Suspect]
     Active Substance: TISLELIZUMAB
     Indication: Gastric cancer
  2. TISLELIZUMAB [Suspect]
     Active Substance: TISLELIZUMAB
     Indication: Bile duct adenocarcinoma
     Route: 041
  3. TISLELIZUMAB [Suspect]
     Active Substance: TISLELIZUMAB
     Indication: Adenocarcinoma gastric
     Route: 041
  4. TISLELIZUMAB [Suspect]
     Active Substance: TISLELIZUMAB
  5. CISPLATIN [Suspect]
     Active Substance: CISPLATIN
     Indication: Gastric cancer
     Route: 041
  6. CISPLATIN [Suspect]
     Active Substance: CISPLATIN
     Indication: Bile duct adenocarcinoma
  7. CISPLATIN [Suspect]
     Active Substance: CISPLATIN
     Indication: Adenocarcinoma gastric
  8. GEMCITABINE HYDROCHLORIDE [Suspect]
     Active Substance: GEMCITABINE HYDROCHLORIDE
     Indication: Gastric cancer
     Route: 041
  9. GEMCITABINE HYDROCHLORIDE [Suspect]
     Active Substance: GEMCITABINE HYDROCHLORIDE
     Indication: Bile duct adenocarcinoma
  10. GEMCITABINE HYDROCHLORIDE [Suspect]
     Active Substance: GEMCITABINE HYDROCHLORIDE
     Indication: Adenocarcinoma gastric

REACTIONS (3)
  - Myelosuppression [Recovering/Resolving]
  - Platelet count decreased [Recovering/Resolving]
  - Anaemia [Unknown]
